FAERS Safety Report 22079220 (Version 1)
Quarter: 2023Q1

REPORT INFORMATION
  Report Type: Spontaneous
  Country: PT (occurrence: PT)
  Receive Date: 20230309
  Receipt Date: 20230309
  Transmission Date: 20230417
  Serious: Yes (Other)
  Sender: FDA-Public Use
  Company Number: None

PATIENT
  Age: 84 Year
  Sex: Male
  Weight: 65 kg

DRUGS (11)
  1. AMOXICILLIN\CLAVULANIC ACID [Suspect]
     Active Substance: AMOXICILLIN\CLAVULANIC ACID
     Indication: Pneumonia aspiration
     Dosage: 1200 MG EV Q8H
     Route: 065
     Dates: start: 20230116, end: 20230122
  2. Sinvastatina + Ezetemiba [Concomitant]
     Indication: Product used for unknown indication
     Dosage: 1 DOSAGE FORMS DAILY; SIMVASTATIN + EZETEMIBE, 20 MG + 10 MG, 1 TABLET AT NIGHT
  3. PROPAFENONE [Concomitant]
     Active Substance: PROPAFENONE
     Indication: Product used for unknown indication
     Dosage: 300 MILLIGRAM DAILY; 150 MG, 1 TABLET MORNING AND EVENING
  4. INDACATEROL [Concomitant]
     Active Substance: INDACATEROL
     Indication: Product used for unknown indication
     Dosage: .1 INHALATION UP TO 2X/DAY ON SOS
  5. MONONITRATO DE ISOSSORBIDA [Concomitant]
     Indication: Product used for unknown indication
     Dosage: 50 MILLIGRAM DAILY; 50 MG, 1 TABLET AT NIGHT
  6. ALLOPURINOL [Concomitant]
     Active Substance: ALLOPURINOL
     Indication: Product used for unknown indication
     Dosage: 300 MILLIGRAM DAILY; 300 MG, 1 TABLET AT LUNCH
  7. NEBIVOLOL [Concomitant]
     Active Substance: NEBIVOLOL
     Indication: Product used for unknown indication
     Dosage: 5 MILLIGRAM DAILY; 1 TABLET IN THE MORNING
  8. ATORVASTATIN [Concomitant]
     Active Substance: ATORVASTATIN
     Indication: Product used for unknown indication
     Dosage: UNKNOWN
     Dates: start: 202301
  9. ASPIRIN [Concomitant]
     Active Substance: ASPIRIN
     Indication: Thrombosis prophylaxis
     Dates: start: 202301
  10. PANTOPRAZOLE SODIUM [Concomitant]
     Active Substance: PANTOPRAZOLE SODIUM
     Indication: Product used for unknown indication
     Dosage: 20 MILLIGRAM DAILY; IN FASTING , 20 MG, 1 TABLET ON AN EMPTY STOMACH
  11. FINASTERIDA [Concomitant]
     Indication: Product used for unknown indication
     Dosage: 5 MILLIGRAM DAILY; 1 TABLET IN THE MORNING

REACTIONS (1)
  - Drug-induced liver injury [Recovered/Resolved]

NARRATIVE: CASE EVENT DATE: 20230122
